FAERS Safety Report 18928563 (Version 2)
Quarter: 2021Q1

REPORT INFORMATION
  Report Type: Spontaneous
  Country: US (occurrence: US)
  Receive Date: 20210223
  Receipt Date: 20210326
  Transmission Date: 20210420
  Serious: Yes (Other)
  Sender: FDA-Public Use
  Company Number: US-TAKEDA-2021TUS011402

PATIENT
  Sex: Female
  Weight: 67.57 kg

DRUGS (11)
  1. IPRATROPIUM/ALBUTEROL [Concomitant]
     Active Substance: ALBUTEROL\IPRATROPIUM
  2. CUVITRU [Suspect]
     Active Substance: HUMAN IMMUNOGLOBULIN G
     Indication: CONGENITAL HYPOGAMMAGLOBULINAEMIA
     Dosage: 8 GRAM, 1/WEEK
     Route: 058
     Dates: start: 20210204
  3. PROTONIX [OMEPRAZOLE] [Concomitant]
     Active Substance: OMEPRAZOLE
  4. FAMOTIDINE. [Concomitant]
     Active Substance: FAMOTIDINE
  5. ACETAMINOPHEN. [Concomitant]
     Active Substance: ACETAMINOPHEN
  6. NUCALA [Concomitant]
     Active Substance: MEPOLIZUMAB
  7. CUVITRU [Suspect]
     Active Substance: HUMAN IMMUNOGLOBULIN G
     Indication: IMMUNODEFICIENCY COMMON VARIABLE
  8. SINGULAIR [Concomitant]
     Active Substance: MONTELUKAST SODIUM
  9. BENADRYL [Concomitant]
     Active Substance: DIPHENHYDRAMINE HYDROCHLORIDE
  10. DIPHENHYDRAMINE. [Concomitant]
     Active Substance: DIPHENHYDRAMINE
  11. EPINEPHRINE. [Concomitant]
     Active Substance: EPINEPHRINE

REACTIONS (9)
  - Flushing [Unknown]
  - Pruritus [Unknown]
  - Urticaria chronic [Unknown]
  - Nasopharyngitis [Unknown]
  - Chills [Unknown]
  - Urticaria [Unknown]
  - Sarcoidosis [Unknown]
  - Anxiety [Unknown]
  - Dizziness [Recovered/Resolved]
